FAERS Safety Report 6712521-7 (Version None)
Quarter: 2010Q2

REPORT INFORMATION
  Report Type: 
  Country: None (occurrence: None)
  Receive Date: 20100506
  Receipt Date: 20100426
  Transmission Date: 20101027
  Serious: Yes (Other)
  Sender: FDA-Public Use
  Company Number: CA-JNJFOC-20100407510

PATIENT
  Sex: Female
  Weight: 108 kg

DRUGS (2)
  1. REMICADE [Suspect]
     Indication: COLITIS ULCERATIVE
     Dosage: 2 DOSES TOTAL
     Route: 042
  2. REMICADE [Suspect]
     Dosage: 2 DOSES TOTAL
     Route: 042

REACTIONS (2)
  - ARTHRALGIA [None]
  - SURGERY [None]
